FAERS Safety Report 9011988 (Version 1)
Quarter: 2012Q4

REPORT INFORMATION
  Report Type: Spontaneous
  Country: GB (occurrence: None)
  Receive Date: 20121228
  Receipt Date: 20121228
  Transmission Date: 20130627
  Serious: Yes (Other)
  Sender: FDA-Public Use
  Company Number: AUR-APL-2012-05581

PATIENT
  Sex: Female

DRUGS (4)
  1. MIRTAZAPINE (MIRTAZAPINE) [Suspect]
  2. VENLAFAXINE (VENLAFAXINE) [Suspect]
  3. ALPRAZOLAM (ALPRAZOLAM) [Suspect]
  4. PALIPERIDONE [Suspect]

REACTIONS (3)
  - Depression [None]
  - Pregnancy [None]
  - Exposure during pregnancy [None]
